FAERS Safety Report 9650408 (Version 2)
Quarter: 2013Q4

REPORT INFORMATION
  Report Type: Report from Study
  Country: US (occurrence: US)
  Receive Date: 20131028
  Receipt Date: 20131028
  Transmission Date: 20140711
  Serious: Yes (Hospitalization)
  Sender: FDA-Public Use
  Company Number: US-ROCHE-1280104

PATIENT
  Sex: Female

DRUGS (6)
  1. XELODA [Suspect]
     Indication: COLON CANCER STAGE III
     Route: 048
     Dates: start: 20130826
  2. XELODA [Suspect]
     Route: 048
     Dates: start: 20130826
  3. OXALIPLATIN [Concomitant]
  4. FOLINIC ACID [Concomitant]
  5. 5-FU [Concomitant]
  6. AMBIEN [Concomitant]

REACTIONS (11)
  - Cholelithiasis [Recovering/Resolving]
  - Infection [Recovering/Resolving]
  - Skin burning sensation [Recovering/Resolving]
  - Amnesia [Not Recovered/Not Resolved]
  - Anxiety [Not Recovered/Not Resolved]
  - Nausea [Not Recovered/Not Resolved]
  - Abdominal pain upper [Recovering/Resolving]
  - Cough [Not Recovered/Not Resolved]
  - Fatigue [Not Recovered/Not Resolved]
  - Platelet count decreased [Unknown]
  - Blood bilirubin increased [Unknown]
